FAERS Safety Report 6911376-5 (Version None)
Quarter: 2010Q3

REPORT INFORMATION
  Report Type: 
  Country: None (occurrence: None)
  Receive Date: 20100806
  Receipt Date: 20100728
  Transmission Date: 20110219
  Serious: Yes (Hospitalization, Other)
  Sender: FDA-Public Use
  Company Number: NL-ABBOTT-10P-114-0660501-00

PATIENT
  Sex: Male
  Weight: 68 kg

DRUGS (9)
  1. LEUPROLIDE ACETATE [Suspect]
     Indication: PROSTATE CANCER
     Route: 058
     Dates: start: 20060901, end: 20100201
  2. LUCRIN DEPOT 30 MG [Suspect]
     Indication: PROSTATE CANCER
     Route: 058
     Dates: start: 20100201
  3. ACENOCOUMAROL [Concomitant]
     Indication: THROMBOSIS
     Route: 048
     Dates: start: 20100625
  4. CALCI CHEW [Concomitant]
     Indication: OSTEOPOROSIS
     Route: 048
     Dates: start: 20090801
  5. FRAXODI [Concomitant]
     Indication: THROMBOSIS
     Dates: end: 20100601
  6. OMEPRAZOLE [Concomitant]
     Indication: PROPHYLAXIS
     Route: 048
     Dates: start: 20090101
  7. OMEPRAZOLE [Concomitant]
     Indication: GASTRIC DISORDER
  8. PREDNISOLONE [Concomitant]
     Indication: INFECTION
     Dates: start: 20090601, end: 20100701
  9. ZOLEDRONIC ACID [Concomitant]
     Indication: METASTASES TO BONE
     Route: 042
     Dates: start: 20100101

REACTIONS (5)
  - ARRHYTHMIA [None]
  - HOT FLUSH [None]
  - PROSTATIC OPERATION [None]
  - PULMONARY EMBOLISM [None]
  - URINARY TRACT OBSTRUCTION [None]
